FAERS Safety Report 9260275 (Version 2)
Quarter: 2013Q4

REPORT INFORMATION
  Report Type: Spontaneous
  Country: FR (occurrence: FR)
  Receive Date: 20130429
  Receipt Date: 20131018
  Transmission Date: 20140711
  Serious: Yes (Hospitalization)
  Sender: FDA-Public Use
  Company Number: FR-AMGEN-FRASP2013028441

PATIENT
  Age: 85 Year
  Sex: Male

DRUGS (5)
  1. ARANESP [Suspect]
     Indication: PRODUCT USED FOR UNKNOWN INDICATION
     Dosage: 300 MUG, QWK
     Route: 058
     Dates: start: 20121217
  2. ZOLOFT [Concomitant]
     Dosage: UNK
  3. ALLOPURINOL [Concomitant]
     Dosage: UNK
  4. ZOPICLONE [Concomitant]
     Dosage: UNK
  5. PROZAC [Concomitant]
     Dosage: 20 MG, UNK

REACTIONS (1)
  - Cerebrovascular accident [Recovered/Resolved]
